FAERS Safety Report 7556487-9 (Version None)
Quarter: 2011Q2

REPORT INFORMATION
  Report Type: 
  Country: None (occurrence: None)
  Receive Date: 20110620
  Receipt Date: 20110607
  Transmission Date: 20111010
  Serious: Yes (Hospitalization)
  Sender: FDA-Public Use
  Company Number: ES-JNJFOC-20110606733

PATIENT
  Age: 62 Year
  Sex: Female

DRUGS (7)
  1. TRAMADOL HCL [Suspect]
     Indication: SCIATICA
     Route: 048
     Dates: start: 20110209, end: 20110225
  2. LYRICA [Suspect]
     Indication: SCIATICA
     Route: 048
     Dates: start: 20110223, end: 20110330
  3. DICLOFENAC SODIUM [Suspect]
     Indication: SCIATICA
     Route: 048
     Dates: start: 20110202, end: 20110330
  4. DUPHALAC [Suspect]
     Indication: PRODUCT USED FOR UNKNOWN INDICATION
     Route: 048
     Dates: start: 20110225, end: 20110330
  5. METAMIZOLE [Suspect]
     Indication: SCIATICA
     Route: 048
     Dates: start: 20110223, end: 20110330
  6. FENTANYL-100 [Suspect]
     Indication: SCIATICA
     Route: 062
     Dates: start: 20110225, end: 20110330
  7. MYOLASTAN [Suspect]
     Indication: SCIATICA
     Route: 048
     Dates: start: 20110223, end: 20110330

REACTIONS (1)
  - PANCREATITIS [None]
